FAERS Safety Report 10757809 (Version 2)
Quarter: 2016Q1

REPORT INFORMATION
  Report Type: Spontaneous
  Country: US (occurrence: US)
  Receive Date: 20150203
  Receipt Date: 20160201
  Transmission Date: 20160525
  Serious: Yes (Other)
  Sender: FDA-Public Use
  Company Number: US-TEVA-537227USA

PATIENT
  Age: 44 Year
  Sex: Female

DRUGS (1)
  1. COPAXONE [Suspect]
     Active Substance: GLATIRAMER ACETATE
     Indication: MULTIPLE SCLEROSIS
     Dates: start: 20140505, end: 20141031

REACTIONS (12)
  - Joint lock [Unknown]
  - Dysgraphia [Unknown]
  - Central nervous system lesion [Unknown]
  - Injection site mass [Unknown]
  - Scleroderma [Unknown]
  - Injection site pain [Unknown]
  - Injection site discolouration [Unknown]
  - Multiple sclerosis relapse [Unknown]
  - Sjogren^s syndrome [Unknown]
  - Optic neuritis [Unknown]
  - Neuralgia [Unknown]
  - Amnesia [Unknown]

NARRATIVE: CASE EVENT DATE: 201410
